FAERS Safety Report 11943080 (Version 1)
Quarter: 2016Q1

REPORT INFORMATION
  Report Type: Spontaneous
  Country: US (occurrence: US)
  Receive Date: 20160125
  Receipt Date: 20160125
  Transmission Date: 20160526
  Serious: No
  Sender: FDA-Public Use
  Company Number: US-UNITED THERAPEUTICS-UNT-2015-010433

PATIENT
  Age: 73 Year
  Sex: Female
  Weight: 47 kg

DRUGS (3)
  1. REMODULIN [Suspect]
     Active Substance: TREPROSTINIL
     Dosage: 0.034 ?G/KG/MIN, CONTINUING
     Route: 041
  2. REMODULIN [Suspect]
     Active Substance: TREPROSTINIL
     Indication: PULMONARY ARTERIAL HYPERTENSION
     Dosage: 0.0335 ?G/KG/MIN, CONTINUING
     Route: 041
     Dates: start: 20080904
  3. LETAIRIS [Suspect]
     Active Substance: AMBRISENTAN
     Indication: PRODUCT USED FOR UNKNOWN INDICATION
     Dosage: 5 MG, QD
     Route: 048
     Dates: start: 20130607

REACTIONS (5)
  - Fatigue [Unknown]
  - Dyspnoea [Unknown]
  - Headache [Unknown]
  - Drug dose omission [Unknown]
  - Sluggishness [Unknown]

NARRATIVE: CASE EVENT DATE: 201508
